FAERS Safety Report 10737474 (Version 1)
Quarter: 2015Q1

REPORT INFORMATION
  Report Type: Spontaneous
  Country: US (occurrence: US)
  Receive Date: 20150126
  Receipt Date: 20150126
  Transmission Date: 20150721
  Serious: No
  Sender: FDA-Public Use
  Company Number: US-009507513-1501USA009178

PATIENT
  Sex: Female

DRUGS (1)
  1. DR. SCHOLL^S ODOR-X [Suspect]
     Active Substance: ZINC OXIDE
     Indication: HYPERHIDROSIS
     Dosage: UNK, UNKNOWN
     Route: 061

REACTIONS (1)
  - Drug ineffective [Unknown]
